FAERS Safety Report 10262662 (Version 2)
Quarter: 2014Q2

REPORT INFORMATION
  Report Type: Spontaneous
  Country: US (occurrence: US)
  Receive Date: 20140626
  Receipt Date: 20140626
  Transmission Date: 20141212
  Serious: Yes (Life-Threatening)
  Sender: FDA-Public Use
  Company Number: 2014SP001518

PATIENT
  Age: 73 Year
  Sex: Male
  Weight: 83 kg

DRUGS (2)
  1. BROVANA [Suspect]
     Route: 055
     Dates: start: 20140507, end: 20140507
  2. BUDESONIDE [Suspect]
     Route: 055
     Dates: start: 20140507, end: 20140508

REACTIONS (1)
  - Pharyngeal oedema [Recovered/Resolved]
